FAERS Safety Report 15010604 (Version 1)
Quarter: 2018Q2

REPORT INFORMATION
  Report Type: Spontaneous
  Country: US (occurrence: US)
  Receive Date: 20180529
  Receipt Date: 20180529
  Transmission Date: 20180711
  Serious: No
  Sender: FDA-Public Use
  Company Number: None

PATIENT
  Age: 68 Year
  Sex: Female

DRUGS (6)
  1. WARFARIN 2.5 [Concomitant]
  2. BACLOFEN 10 [Concomitant]
     Active Substance: BACLOFEN
  3. CLOBETASOL PROP CREAM [Concomitant]
  4. FLUOXETINE [Suspect]
     Active Substance: FLUOXETINE HYDROCHLORIDE
     Route: 048
     Dates: start: 20180402, end: 20180527
  5. SYNTHROID 75 [Concomitant]
  6. PREMARIN [Concomitant]
     Active Substance: ESTROGENS, CONJUGATED

REACTIONS (1)
  - Hallucination [None]

NARRATIVE: CASE EVENT DATE: 20180527
